FAERS Safety Report 5359979-6 (Version None)
Quarter: 2007Q2

REPORT INFORMATION
  Report Type: 
  Country: None (occurrence: None)
  Receive Date: 20070617
  Receipt Date: 20070606
  Transmission Date: 20071010
  Serious: Yes (Other)
  Sender: FDA-Public Use
  Company Number: FR-JNJFOC-20070502706

PATIENT
  Age: 29 Year
  Sex: Male

DRUGS (5)
  1. REMICADE [Suspect]
     Indication: CROHN'S DISEASE
     Route: 042
  2. CORTANCYL [Concomitant]
     Indication: CROHN'S DISEASE
     Route: 048
  3. AZATHIOPRINE SODIUM [Concomitant]
     Indication: CROHN'S DISEASE
  4. ROVAZA [Concomitant]
     Indication: CROHN'S DISEASE
  5. SALAZOPYRINE [Concomitant]
     Indication: CROHN'S DISEASE

REACTIONS (1)
  - TOXIC SKIN ERUPTION [None]
